FAERS Safety Report 23225915 (Version 2)
Quarter: 2023Q4

REPORT INFORMATION
  Report Type: Spontaneous
  Country: US (occurrence: US)
  Receive Date: 20231124
  Receipt Date: 20231214
  Transmission Date: 20240110
  Serious: No
  Sender: FDA-Public Use
  Company Number: US-INCYTE CORPORATION-2023IN011933

PATIENT

DRUGS (4)
  1. OPZELURA [Suspect]
     Active Substance: RUXOLITINIB PHOSPHATE
     Indication: Vitiligo
     Dosage: UNK, BID
     Route: 065
     Dates: start: 20230126
  2. OPZELURA [Suspect]
     Active Substance: RUXOLITINIB PHOSPHATE
     Dosage: UNK
     Route: 065
     Dates: start: 20231031, end: 20231114
  3. KETOCONAZOLE [Suspect]
     Active Substance: KETOCONAZOLE
     Route: 065
  4. CLOBETASOL [Suspect]
     Active Substance: CLOBETASOL
     Route: 065

REACTIONS (2)
  - Maternal exposure during pregnancy [Unknown]
  - Product availability issue [Unknown]
